FAERS Safety Report 13321268 (Version 1)
Quarter: 2017Q1

REPORT INFORMATION
  Report Type: Spontaneous
  Country: US (occurrence: US)
  Receive Date: 20170310
  Receipt Date: 20170310
  Transmission Date: 20170428
  Serious: Yes (Other)
  Sender: FDA-Public Use
  Company Number: None

PATIENT
  Age: 61 Year
  Sex: Female
  Weight: 65.25 kg

DRUGS (12)
  1. FISH OIL [Concomitant]
     Active Substance: FISH OIL
  2. CELECOXIB. [Concomitant]
     Active Substance: CELECOXIB
  3. CLONAZEPAM. [Concomitant]
     Active Substance: CLONAZEPAM
  4. VITAMIN C [Concomitant]
     Active Substance: ASCORBIC ACID
  5. KRILL OIL [Concomitant]
     Active Substance: DIETARY SUPPLEMENT
  6. ESCITALOPRAM [Concomitant]
     Active Substance: ESCITALOPRAM OXALATE
  7. CRANBERRY. [Concomitant]
     Active Substance: CRANBERRY
  8. DEXTROAMPHET SACCHARAT, AMPHET ASPARTATE, DEXTROAMPHET SULFATE AND AMPHET SULFAT [Suspect]
     Active Substance: AMPHETAMINE ASPARTATE\AMPHETAMINE SULFATE\DEXTROAMPHETAMINE SACCHARATE\DEXTROAMPHETAMINE SULFATE
     Indication: ATTENTION DEFICIT/HYPERACTIVITY DISORDER
     Dosage: QUANTITY:1 TABLET(S);OTHER FREQUENCY:UP T 5/ AS NEEDED; SEE NOTE ABOVE?
     Route: 048
  9. BUPROPION. [Concomitant]
     Active Substance: BUPROPION
  10. IBUPROFEN. [Concomitant]
     Active Substance: IBUPROFEN
  11. BIOTIN [Concomitant]
     Active Substance: BIOTIN
  12. LEVOTHYROXINE. [Concomitant]
     Active Substance: LEVOTHYROXINE

REACTIONS (7)
  - Product formulation issue [None]
  - Drug effect decreased [None]
  - Unevaluable event [None]
  - Disorientation [None]
  - Malaise [None]
  - Fear [None]
  - Product substitution issue [None]

NARRATIVE: CASE EVENT DATE: 20160301
